FAERS Safety Report 19770362 (Version 2)
Quarter: 2021Q3

REPORT INFORMATION
  Report Type: Spontaneous
  Country: GB (occurrence: GB)
  Receive Date: 20210831
  Receipt Date: 20210831
  Transmission Date: 20211014
  Serious: Yes (Other)
  Sender: FDA-Public Use
  Company Number: GB-PERRIGO-21GB011466

PATIENT
  Age: 37 Year
  Sex: Female
  Weight: 52 kg

DRUGS (12)
  1. VACCINES [Concomitant]
     Active Substance: UNSPECIFIED INGREDIENT
     Indication: COVID-19 IMMUNISATION
     Dosage: DOSE 2
     Dates: start: 20210711, end: 20210711
  2. NIFEDIPINE. [Concomitant]
     Active Substance: NIFEDIPINE
     Indication: RAYNAUD^S PHENOMENON
  3. CERELLE [Concomitant]
     Active Substance: DESOGESTREL
     Indication: HORMONE LEVEL ABNORMAL
  4. CREATINE [Concomitant]
     Active Substance: CREATINE
  5. FERROUS FUMARATE [Concomitant]
     Active Substance: FERROUS FUMARATE
     Dosage: AS NECESSARY
  6. CORACTEN [Concomitant]
     Active Substance: NIFEDIPINE
  7. PROMETHAZINE [Concomitant]
     Active Substance: PROMETHAZINE HYDROCHLORIDE
  8. IBUPROFEN. [Suspect]
     Active Substance: IBUPROFEN
     Indication: PRODUCT USED FOR UNKNOWN INDICATION
     Dosage: UNK
     Route: 065
  9. DOXYCYCLINE. [Concomitant]
     Active Substance: DOXYCYCLINE
     Indication: ACNE
  10. CITALOPRAM [Concomitant]
     Active Substance: CITALOPRAM HYDROBROMIDE
     Indication: OBSESSIVE-COMPULSIVE DISORDER
  11. THYROXINE [Concomitant]
     Active Substance: LEVOTHYROXINE
     Indication: HORMONE LEVEL ABNORMAL
  12. PHOSPHOLIPIDS [Concomitant]
     Active Substance: OMEGA-3 FATTY ACIDS

REACTIONS (1)
  - Nausea [Recovered/Resolved]
